FAERS Safety Report 11468596 (Version 1)
Quarter: 2015Q3

REPORT INFORMATION
  Report Type: Spontaneous
  Country: GB (occurrence: GB)
  Receive Date: 20150908
  Receipt Date: 20150908
  Transmission Date: 20151125
  Serious: Yes (Other)
  Sender: FDA-Public Use
  Company Number: GB-TEVA-591837ISR

PATIENT
  Sex: Female

DRUGS (4)
  1. WARFARIN [Concomitant]
     Active Substance: WARFARIN
     Indication: ATRIAL FIBRILLATION
     Route: 065
     Dates: start: 201404
  2. PREDNISOLONE. [Suspect]
     Active Substance: PREDNISOLONE
     Indication: IMMUNOSUPPRESSION
  3. AZATHIOPRINE. [Concomitant]
     Active Substance: AZATHIOPRINE
     Dosage: USED FOR 1Y
     Route: 065
  4. PREDNISOLONE. [Suspect]
     Active Substance: PREDNISOLONE
     Indication: OPTIC NEURITIS
     Dosage: 1 DOSAGE FORMS DAILY; DF = 10-60 MG; REDUCED, THEN FURTHER WEANED TO 5MG ONCE DAILY
     Route: 048
     Dates: start: 2007

REACTIONS (4)
  - Hyperphosphataemia [Unknown]
  - Obesity [Unknown]
  - Calciphylaxis [Recovering/Resolving]
  - Type 1 diabetes mellitus [Unknown]
